FAERS Safety Report 6075192-1 (Version None)
Quarter: 2009Q1

REPORT INFORMATION
  Report Type: 
  Country: None (occurrence: None)
  Receive Date: 20090210
  Receipt Date: 20090129
  Transmission Date: 20090719
  Serious: Yes (Death)
  Sender: FDA-Public Use
  Company Number: KADN20080382

PATIENT
  Age: 49 Year
  Sex: Female
  Weight: 66.2252 kg

DRUGS (3)
  1. KADIAN [Suspect]
     Indication: BACK PAIN
     Dosage: 30 MG, 1 IN 12 HR, ORAL
     Route: 048
     Dates: start: 20081013
  2. MOBIC [Suspect]
     Indication: BACK PAIN
     Dosage: 7.5 MG, 1 IN 24 HR, ORAL
     Route: 048
  3. DILANTIN [Concomitant]

REACTIONS (11)
  - CARDIAC DISORDER [None]
  - CARDIAC HYPERTROPHY [None]
  - COR PULMONALE [None]
  - DILATATION VENTRICULAR [None]
  - HEPATIC CONGESTION [None]
  - LUNG DISORDER [None]
  - NEPHROSCLEROSIS [None]
  - PNEUMOCONIOSIS [None]
  - PULMONARY CONGESTION [None]
  - PULMONARY OEDEMA [None]
  - RENAL TUBULAR ATROPHY [None]
